FAERS Safety Report 8056214 (Version 3)
Quarter: 2015Q1

REPORT INFORMATION
  Report Type: Spontaneous
  Country: US (occurrence: US)
  Receive Date: 20110727
  Receipt Date: 20150116
  Transmission Date: 20150721
  Serious: Yes (Other)
  Sender: FDA-Public Use
  Company Number: US-BAYER-2011-064277

PATIENT
  Sex: Female

DRUGS (1)
  1. MIRENA [Suspect]
     Active Substance: LEVONORGESTREL
     Indication: CONTRACEPTION
     Dosage: UNK

REACTIONS (8)
  - Back pain [None]
  - Hypomenorrhoea [None]
  - Muscle spasms [None]
  - Device misuse [None]
  - Medical device complication [None]
  - Infertility female [None]
  - Endometrial atrophy [None]
  - Amenorrhoea [Recovered/Resolved]
